FAERS Safety Report 11512654 (Version 1)
Quarter: 2015Q3

REPORT INFORMATION
  Report Type: Report from Study
  Country: CN (occurrence: CN)
  Receive Date: 20150916
  Receipt Date: 20150916
  Transmission Date: 20151125
  Serious: Yes (Other)
  Sender: FDA-Public Use
  Company Number: CN-ASTELLAS-2015US033042

PATIENT
  Age: 48 Year
  Sex: Male

DRUGS (1)
  1. MICAFUNGIN [Suspect]
     Active Substance: MICAFUNGIN
     Indication: FUNGAL INFECTION
     Route: 042
     Dates: start: 20131005, end: 20131006

REACTIONS (8)
  - Gastrointestinal hypermotility [Unknown]
  - Gastrointestinal haemorrhage [Unknown]
  - Altered state of consciousness [Unknown]
  - Arthralgia [Unknown]
  - Skin discolouration [Unknown]
  - Nodal arrhythmia [Unknown]
  - Pupillary reflex impaired [Unknown]
  - Blood creatinine increased [Unknown]

NARRATIVE: CASE EVENT DATE: 20131006
